FAERS Safety Report 17250153 (Version 2)
Quarter: 2020Q1

REPORT INFORMATION
  Report Type: Spontaneous
  Country: CA (occurrence: CA)
  Receive Date: 20200109
  Receipt Date: 20200217
  Transmission Date: 20200409
  Serious: Yes (Other)
  Sender: FDA-Public Use
  Company Number: CA-AUROBINDO-AUR-APL-2020-000432

PATIENT
  Age: 55 Year
  Sex: Female

DRUGS (57)
  1. ACTEMRA [Interacting]
     Active Substance: TOCILIZUMAB
     Indication: PRODUCT USED FOR UNKNOWN INDICATION
     Dosage: UNK
     Route: 065
  2. PERPHENAZINE AND AMITRIPTYLINE HYDROCHLORIDE [Interacting]
     Active Substance: AMITRIPTYLINE HYDROCHLORIDE\PERPHENAZINE
     Indication: RHEUMATOID ARTHRITIS
     Dosage: UNK
     Route: 065
  3. APO-AZATHIOPRINE [Interacting]
     Active Substance: AZATHIOPRINE
     Indication: PRODUCT USED FOR UNKNOWN INDICATION
     Dosage: UNK
     Route: 065
  4. APO-DICLOFENAC [Interacting]
     Active Substance: DICLOFENAC
     Indication: RHEUMATOID ARTHRITIS
     Dosage: UNK
     Route: 061
  5. ARAVA [Interacting]
     Active Substance: LEFLUNOMIDE
     Indication: PRODUCT USED FOR UNKNOWN INDICATION
     Dosage: UNK
     Route: 065
  6. LYRICA [Interacting]
     Active Substance: PREGABALIN
     Indication: RHEUMATOID ARTHRITIS
     Dosage: UNK
     Route: 065
  7. METHOTREXATE. [Interacting]
     Active Substance: METHOTREXATE
     Indication: RHEUMATOID ARTHRITIS
     Dosage: UNK
     Route: 051
  8. METHOTREXATE. [Interacting]
     Active Substance: METHOTREXATE
     Dosage: UNK
     Route: 048
  9. METHOTREXATE. [Interacting]
     Active Substance: METHOTREXATE
     Dosage: UNK
     Route: 042
  10. NAPROXEN. [Interacting]
     Active Substance: NAPROXEN
     Indication: RHEUMATOID ARTHRITIS
     Dosage: UNK
     Route: 065
  11. RITUXIMAB. [Interacting]
     Active Substance: RITUXIMAB
     Indication: PRODUCT USED FOR UNKNOWN INDICATION
     Dosage: 2000 MILLIGRAM
     Route: 042
  12. WINPRED [Interacting]
     Active Substance: PREDNISONE
     Indication: PRODUCT USED FOR UNKNOWN INDICATION
     Dosage: UNK
     Route: 065
  13. CELECOXIB. [Interacting]
     Active Substance: CELECOXIB
     Indication: RHEUMATOID ARTHRITIS
     Dosage: UNK
     Route: 065
  14. APO-AMITRIPTYLINE [Interacting]
     Active Substance: AMITRIPTYLINE HYDROCHLORIDE
     Indication: RHEUMATOID ARTHRITIS
     Dosage: UNK
     Route: 065
  15. APO-DICLO [Interacting]
     Active Substance: DICLOFENAC SODIUM
     Indication: RHEUMATOID ARTHRITIS
     Dosage: UNK
     Route: 065
  16. APO-NAPROXEN [Interacting]
     Active Substance: NAPROXEN
     Indication: PRODUCT USED FOR UNKNOWN INDICATION
     Dosage: UNK
     Route: 065
  17. CELEBREX [Interacting]
     Active Substance: CELECOXIB
     Indication: ARTHRITIS
  18. DICLOFENAC [Interacting]
     Active Substance: DICLOFENAC
     Dosage: UNK
     Route: 065
  19. LEFLUNOMIDE. [Interacting]
     Active Substance: LEFLUNOMIDE
     Indication: PRODUCT USED FOR UNKNOWN INDICATION
     Dosage: UNK
     Route: 065
  20. PREGABALIN CAPSULES [Interacting]
     Active Substance: PREGABALIN
     Indication: PRODUCT USED FOR UNKNOWN INDICATION
     Dosage: UNK
     Route: 065
  21. CELEBREX [Interacting]
     Active Substance: CELECOXIB
     Indication: ARTHRITIS
  22. NAPROSYN [Interacting]
     Active Substance: NAPROXEN
     Indication: RHEUMATOID ARTHRITIS
     Dosage: UNK
     Route: 065
  23. NIFEDIPINE. [Interacting]
     Active Substance: NIFEDIPINE
     Indication: RHEUMATOID ARTHRITIS
     Dosage: UNK
     Route: 065
  24. ORENCIA [Interacting]
     Active Substance: ABATACEPT
     Dosage: 750 MILLIGRAM, EVERY WEEK
     Route: 058
  25. CELECOXIB. [Suspect]
     Active Substance: CELECOXIB
     Indication: ARTHRITIS
     Dosage: UNK
     Route: 065
  26. CELECOXIB. [Interacting]
     Active Substance: CELECOXIB
     Indication: RHEUMATOID ARTHRITIS
     Dosage: UNK
     Route: 065
  27. ORENCIA [Interacting]
     Active Substance: ABATACEPT
     Indication: PRODUCT USED FOR UNKNOWN INDICATION
     Dosage: UNK
     Route: 065
  28. PREDNISONE. [Interacting]
     Active Substance: PREDNISONE
     Indication: RHEUMATOID ARTHRITIS
     Dosage: UNK
     Route: 065
  29. SULFASALAZINE. [Interacting]
     Active Substance: SULFASALAZINE
     Indication: PRODUCT USED FOR UNKNOWN INDICATION
     Dosage: UNK
     Route: 065
  30. CELECOXIB. [Interacting]
     Active Substance: CELECOXIB
     Indication: ARTHRITIS
  31. ALLOPURINOL. [Interacting]
     Active Substance: ALLOPURINOL
     Indication: RHEUMATOID ARTHRITIS
     Dosage: UNK
     Route: 065
  32. PERPHENAZINE AND AMITRIPTYLINE HYDROCHLORIDE [Interacting]
     Active Substance: AMITRIPTYLINE HYDROCHLORIDE\PERPHENAZINE
     Dosage: UNK
     Route: 065
  33. DICLOFENAC POTASSIUM. [Interacting]
     Active Substance: DICLOFENAC POTASSIUM
     Indication: RHEUMATOID ARTHRITIS
     Dosage: UNK
     Route: 065
  34. HYDROXYCHLOROQUINE SULFATE. [Interacting]
     Active Substance: HYDROXYCHLOROQUINE SULFATE
     Dosage: UNK
     Route: 065
  35. ORENCIA [Interacting]
     Active Substance: ABATACEPT
     Dosage: UNK
     Route: 065
  36. AMITRIPTYLINE [Interacting]
     Active Substance: AMITRIPTYLINE
     Indication: RHEUMATOID ARTHRITIS
     Dosage: UNK
     Route: 065
  37. APO-LEFLUNOMIDE [Interacting]
     Active Substance: LEFLUNOMIDE
     Indication: PRODUCT USED FOR UNKNOWN INDICATION
     Dosage: UNK
     Route: 065
  38. APO-PREDNISONE [Interacting]
     Active Substance: PREDNISONE
     Indication: RHEUMATOID ARTHRITIS
     Dosage: 5 MILLIGRAM
     Route: 065
  39. DICLOFENAC [Interacting]
     Active Substance: DICLOFENAC
     Indication: RHEUMATOID ARTHRITIS
     Dosage: UNK
     Route: 065
  40. ETANERCEPT [Interacting]
     Active Substance: ETANERCEPT
     Indication: RHEUMATOID ARTHRITIS
     Dosage: UNK
     Route: 065
  41. HUMIRA [Interacting]
     Active Substance: ADALIMUMAB
     Indication: RHEUMATOID ARTHRITIS
     Dosage: 40 MILLIGRAM
     Route: 058
  42. XELJANZ [Interacting]
     Active Substance: TOFACITINIB CITRATE
     Indication: RHEUMATOID ARTHRITIS
     Dosage: 1 DOSAGE FORM, TWO TIMES A DAY
     Route: 048
  43. PREGABALIN. [Interacting]
     Active Substance: PREGABALIN
     Indication: PRODUCT USED FOR UNKNOWN INDICATION
     Dosage: UNK
     Route: 065
  44. CELEBREX [Interacting]
     Active Substance: CELECOXIB
     Indication: RHEUMATOID ARTHRITIS
     Dosage: UNK
     Route: 065
  45. CELEBREX [Interacting]
     Active Substance: CELECOXIB
     Indication: RHEUMATOID ARTHRITIS
     Dosage: UNK
     Route: 065
  46. ENBREL [Interacting]
     Active Substance: ETANERCEPT
     Indication: RHEUMATOID ARTHRITIS
     Dosage: 50 MILLIGRAM, EVERY WEEK
     Route: 058
  47. HYDROXYCHLOROQUINE [Interacting]
     Active Substance: HYDROXYCHLOROQUINE
     Dosage: UNK
     Route: 065
  48. METHOTREXATE. [Interacting]
     Active Substance: METHOTREXATE
     Indication: RHEUMATOID ARTHRITIS
     Dosage: UNK
     Route: 065
  49. TOFACITINIB [Concomitant]
     Active Substance: TOFACITINIB
     Indication: PRODUCT USED FOR UNKNOWN INDICATION
     Dosage: UNK
     Route: 065
  50. AMITRIPTYLINE [Interacting]
     Active Substance: AMITRIPTYLINE
     Indication: RHEUMATOID ARTHRITIS
     Dosage: UNK
     Route: 065
  51. AMITRIPTYLINE [Interacting]
     Active Substance: AMITRIPTYLINE
     Indication: RHEUMATOID ARTHRITIS
     Dosage: UNK
     Route: 065
  52. ARTHROTEC [Interacting]
     Active Substance: DICLOFENAC SODIUM\MISOPROSTOL
     Indication: RHEUMATOID ARTHRITIS
     Dosage: UNK
     Route: 065
  53. AZATHIOPRINE. [Interacting]
     Active Substance: AZATHIOPRINE
     Indication: PRODUCT USED FOR UNKNOWN INDICATION
     Dosage: UNK
     Route: 065
  54. DICLOFENAC SODIUM. [Interacting]
     Active Substance: DICLOFENAC SODIUM
     Indication: RHEUMATOID ARTHRITIS
     Dosage: UNK
     Route: 065
  55. HYDROXYCHLOROQUINE [Interacting]
     Active Substance: HYDROXYCHLOROQUINE
     Indication: PRODUCT USED FOR UNKNOWN INDICATION
     Dosage: UNK
     Route: 065
  56. HYDROXYCHLOROQUINE SULFATE. [Interacting]
     Active Substance: HYDROXYCHLOROQUINE SULFATE
     Indication: RHEUMATOID ARTHRITIS
     Dosage: UNK
     Route: 065
  57. MISOPROSTOL. [Interacting]
     Active Substance: MISOPROSTOL
     Indication: RHEUMATOID ARTHRITIS
     Dosage: UNK
     Route: 065

REACTIONS (25)
  - Asthenia [Not Recovered/Not Resolved]
  - Condition aggravated [Not Recovered/Not Resolved]
  - Impaired work ability [Not Recovered/Not Resolved]
  - Mobility decreased [Not Recovered/Not Resolved]
  - Rash [Not Recovered/Not Resolved]
  - Rheumatoid arthritis [Not Recovered/Not Resolved]
  - Therapeutic response decreased [Not Recovered/Not Resolved]
  - Arthralgia [Not Recovered/Not Resolved]
  - Blood cholesterol increased [Not Recovered/Not Resolved]
  - Synovitis [Not Recovered/Not Resolved]
  - Wrist deformity [Not Recovered/Not Resolved]
  - Anaphylactic reaction [Not Recovered/Not Resolved]
  - Malaise [Not Recovered/Not Resolved]
  - Movement disorder [Not Recovered/Not Resolved]
  - Pain [Not Recovered/Not Resolved]
  - Pain in jaw [Not Recovered/Not Resolved]
  - Swelling [Not Recovered/Not Resolved]
  - Drug ineffective [Not Recovered/Not Resolved]
  - Drug intolerance [Not Recovered/Not Resolved]
  - Contraindicated product administered [Not Recovered/Not Resolved]
  - Disease recurrence [Not Recovered/Not Resolved]
  - Drug interaction [Not Recovered/Not Resolved]
  - Gastrooesophageal reflux disease [Not Recovered/Not Resolved]
  - Muscle spasms [Not Recovered/Not Resolved]
  - Off label use [Not Recovered/Not Resolved]
